FAERS Safety Report 5616701-3 (Version None)
Quarter: 2008Q1

REPORT INFORMATION
  Report Type: 
  Country: None (occurrence: None)
  Receive Date: 20080207
  Receipt Date: 20080130
  Transmission Date: 20080703
  Serious: Yes (Hospitalization)
  Sender: FDA-Public Use
  Company Number: PHBS2008US01571

PATIENT
  Age: 71 Year
  Sex: Male

DRUGS (4)
  1. ZOLEDRONIC ACID [Suspect]
     Indication: MULTIPLE MYELOMA
     Dosage: UNK, QMO
     Dates: start: 20030901
  2. SIMVASTATIN [Concomitant]
  3. ATENOLOL [Concomitant]
  4. ASPIRIN [Concomitant]

REACTIONS (18)
  - ARTIFICIAL CROWN PROCEDURE [None]
  - BONE DENSITY DECREASED [None]
  - BONE DISORDER [None]
  - BONE OPERATION [None]
  - BREATH ODOUR [None]
  - DENTAL OPERATION [None]
  - DISCOMFORT [None]
  - FRACTURE REDUCTION [None]
  - INFECTION [None]
  - JAW FRACTURE [None]
  - OEDEMA [None]
  - OSTEONECROSIS [None]
  - PARAESTHESIA ORAL [None]
  - PERIODONTITIS [None]
  - PRIMARY SEQUESTRUM [None]
  - TENDERNESS [None]
  - TRISMUS [None]
  - X-RAY ABNORMAL [None]
